FAERS Safety Report 10128448 (Version 1)
Quarter: 2014Q2

REPORT INFORMATION
  Report Type: Spontaneous
  Country: US (occurrence: US)
  Receive Date: 20140428
  Receipt Date: 20140428
  Transmission Date: 20141212
  Serious: Yes (Disabling)
  Sender: FDA-Public Use
  Company Number: US-ROCHE-1388942

PATIENT
  Age: 57 Year
  Sex: Female
  Weight: 66 kg

DRUGS (21)
  1. RIBAVIRIN [Suspect]
     Indication: HEPATITIS C
     Route: 048
     Dates: start: 20140306, end: 20140311
  2. SOVALDI [Suspect]
     Indication: HEPATITIS C
     Route: 065
     Dates: start: 20140306, end: 20140311
  3. METHADONE [Concomitant]
  4. PENTOXIFYLLINE [Concomitant]
  5. LANSOPRAZOLE [Concomitant]
  6. TIOTROPIUM [Concomitant]
  7. TRAMADOL [Concomitant]
  8. ALBUTEROL [Concomitant]
  9. LIDODERM [Concomitant]
  10. EPZICOM [Concomitant]
  11. SUSTIVA [Concomitant]
  12. LASIX [Concomitant]
  13. ALDACTONE (UNITED STATES) [Concomitant]
  14. PRAVASTATIN [Concomitant]
  15. SYMBICORT [Concomitant]
  16. ADDERALL [Concomitant]
  17. SERTRALINE [Concomitant]
  18. ARIPIPRAZOLE [Concomitant]
  19. CLARITIN [Concomitant]
  20. K-DUR [Concomitant]
  21. FLONASE [Concomitant]

REACTIONS (4)
  - Ataxia [Recovered/Resolved]
  - Tremor [Recovered/Resolved]
  - Dyspnoea [Recovered/Resolved]
  - Balance disorder [Recovered/Resolved]
